FAERS Safety Report 8477368-2 (Version None)
Quarter: 2012Q2

REPORT INFORMATION
  Report Type: 
  Country: None (occurrence: None)
  Receive Date: 20120618
  Receipt Date: 20120601
  Transmission Date: 20120825
  Serious: Yes (Other)
  Sender: FDA-Public Use
  Company Number: ENTC2012-0239

PATIENT
  Age: 72 Year
  Sex: Male

DRUGS (9)
  1. STALEVO 50 [Suspect]
     Dosage: 450 MG, 3 IN 1 D
  2. ATENOLOL [Concomitant]
  3. CLONAZEPAM [Concomitant]
  4. BENAZEPRIL HYDROCHLORIDE [Concomitant]
  5. PRAVASTATIN [Concomitant]
  6. VENLAFAXINE HCL [Concomitant]
  7. AMANTADINE HCL [Concomitant]
  8. FUROSEMIDE [Concomitant]
  9. POTASSIUM CHLORIDE [Concomitant]

REACTIONS (1)
  - ARTHROPATHY [None]
